FAERS Safety Report 5780482-3 (Version None)
Quarter: 2008Q2

REPORT INFORMATION
  Report Type: 
  Country: None (occurrence: None)
  Receive Date: 20080620
  Receipt Date: 20080609
  Transmission Date: 20081010
  Serious: Yes (Other)
  Sender: FDA-Public Use
  Company Number: FR-ELI_LILLY_AND_COMPANY-FR200806003145

PATIENT
  Age: 80 Year
  Sex: Male

DRUGS (1)
  1. GEMZAR [Suspect]
     Dosage: UNK, UNKNOWN
     Route: 042

REACTIONS (2)
  - LUNG DISORDER [None]
  - OEDEMA PERIPHERAL [None]
